FAERS Safety Report 9194132 (Version 1)
Quarter: 2013Q1

REPORT INFORMATION
  Report Type: Spontaneous
  Country: ES (occurrence: ES)
  Receive Date: 20130327
  Receipt Date: 20130327
  Transmission Date: 20140127
  Serious: Yes (Hospitalization)
  Sender: FDA-Public Use
  Company Number: ES-ELI_LILLY_AND_COMPANY-ES201303007630

PATIENT
  Age: 64 None
  Sex: Female
  Weight: 79 kg

DRUGS (10)
  1. FORSTEO [Suspect]
     Indication: OSTEOPOROSIS
     Dosage: 20 UG, QD
     Route: 058
     Dates: start: 20101122
  2. METILPREDNISOLONE [Concomitant]
     Indication: ANTIINFLAMMATORY THERAPY
     Dosage: UNK, PRN
     Route: 048
  3. HIDROSALURETIL [Concomitant]
     Indication: PERIPHERAL VASCULAR DISORDER
     Dosage: 1 DF, QD
     Route: 048
  4. VANDRAL [Concomitant]
     Indication: DEPRESSION
     Dosage: 1 DF, BID
     Route: 048
  5. OMEPRAZOL [Concomitant]
     Indication: GASTRIC DISORDER
     Dosage: 1 DF, QD
     Route: 048
  6. ENALAPRIL [Concomitant]
     Indication: HYPERTENSION
     Dosage: 1 DF, QD
     Route: 048
  7. LORAZEPAM [Concomitant]
     Indication: INSOMNIA
     Dosage: 1 DF, QD
     Route: 048
  8. METOJECT [Concomitant]
     Indication: OSTEOARTHRITIS
     Dosage: UNK, 5 UNITS ON THURSDAY
     Route: 058
  9. ACFOL [Concomitant]
     Indication: OSTEOARTHRITIS
     Dosage: UNK, WEEKLY (1/W) FRIDAY
     Route: 048
  10. ENBREL [Concomitant]
     Indication: OSTEOARTHRITIS
     Dosage: UNK, WEEKLY (1/W)
     Route: 058

REACTIONS (6)
  - Pelvic fracture [Recovered/Resolved]
  - Pelvic fracture [Recovered/Resolved]
  - Back pain [Recovered/Resolved]
  - Patella fracture [Recovering/Resolving]
  - Tendon injury [Unknown]
  - Drug ineffective [Unknown]
